FAERS Safety Report 21763225 (Version 1)
Quarter: 2022Q4

REPORT INFORMATION
  Report Type: Spontaneous
  Country: US (occurrence: None)
  Receive Date: 20221221
  Receipt Date: 20221221
  Transmission Date: 20230112
  Serious: No
  Sender: FDA-Public Use
  Company Number: None

PATIENT
  Age: 62 Year
  Sex: Female
  Weight: 104.14 kg

DRUGS (9)
  1. IBRANCE [Suspect]
     Active Substance: PALBOCICLIB
     Indication: Breast cancer female
     Dosage: 100MG 21D ON 7D OFF ORAL
     Route: 048
  2. ALPRAZOLAM [Concomitant]
     Active Substance: ALPRAZOLAM
  3. DOXYCYCLINE [Concomitant]
     Active Substance: DOXYCYCLINE
  4. HYDROXYZINE [Concomitant]
     Active Substance: HYDROXYZINE HYDROCHLORIDE
  5. IBUPROFEN [Concomitant]
     Active Substance: IBUPROFEN
  6. LISINOPRIL [Concomitant]
     Active Substance: LISINOPRIL
  7. VENTOLIN [Concomitant]
     Active Substance: ALBUTEROL SULFATE
  8. XGEVA [Concomitant]
     Active Substance: DENOSUMAB
  9. ZOMETA [Concomitant]
     Active Substance: ZOLEDRONIC ACID

REACTIONS (1)
  - Full blood count decreased [None]
